FAERS Safety Report 7135147-2 (Version None)
Quarter: 2010Q4

REPORT INFORMATION
  Report Type: 
  Country: None (occurrence: None)
  Receive Date: 20101203
  Receipt Date: 20101129
  Transmission Date: 20110411
  Serious: Yes (Disabling)
  Sender: FDA-Public Use
  Company Number: US-PFIZER INC-2010161155

PATIENT
  Sex: Female

DRUGS (2)
  1. NORVASC [Suspect]
  2. PROCARDIA [Suspect]

REACTIONS (1)
  - JOINT SWELLING [None]
